FAERS Safety Report 7410427-1 (Version None)
Quarter: 2011Q2

REPORT INFORMATION
  Report Type: 
  Country: None (occurrence: None)
  Receive Date: 20110412
  Receipt Date: 20110331
  Transmission Date: 20111010
  Serious: Yes (Hospitalization, Other)
  Sender: FDA-Public Use
  Company Number: CA-BAYER-2011-015150

PATIENT
  Age: 33 Year
  Sex: Female

DRUGS (6)
  1. MULTI-VITAMINS [Concomitant]
     Route: 048
  2. VITAMIN B COMPLEX CAP [Concomitant]
     Dosage: UNK UNK, BID
     Route: 048
  3. RISPERIDONE [Concomitant]
     Dosage: 3 MG, BID
     Route: 048
  4. DEXTROAMPHETAMINE [Concomitant]
     Dosage: 5 MG, UNK
     Route: 048
  5. CIPRO XR [Suspect]
     Indication: URINARY TRACT INFECTION
     Dosage: 500 MG, QD
     Route: 048
     Dates: start: 20101115, end: 20101120
  6. DIVALPROEX SODIUM [Concomitant]
     Dosage: 250 MG, BID
     Route: 048

REACTIONS (14)
  - ALANINE AMINOTRANSFERASE INCREASED [None]
  - ANION GAP DECREASED [None]
  - BLOOD CHLORIDE DECREASED [None]
  - ABDOMINAL PAIN [None]
  - DIARRHOEA [None]
  - RENAL FAILURE [None]
  - BLOOD CREATINE INCREASED [None]
  - GAMMA-GLUTAMYLTRANSFERASE DECREASED [None]
  - ELECTROLYTE IMBALANCE [None]
  - BLOOD SODIUM DECREASED [None]
  - GLOMERULAR FILTRATION RATE DECREASED [None]
  - HEPATITIS ACUTE [None]
  - BLOOD POTASSIUM INCREASED [None]
  - BLOOD UREA INCREASED [None]
